FAERS Safety Report 12775656 (Version 3)
Quarter: 2016Q4

REPORT INFORMATION
  Report Type: Report from Study
  Country: None (occurrence: US)
  Receive Date: 20160923
  Receipt Date: 20161214
  Transmission Date: 20170207
  Serious: Yes (Death)
  Sender: FDA-Public Use
  Company Number: US-ABBVIE-16P-163-1733250-00

PATIENT
  Age: 57 Year
  Sex: Female
  Weight: 88.98 kg

DRUGS (6)
  1. STELARA [Concomitant]
     Active Substance: USTEKINUMAB
     Indication: PSORIASIS
     Dates: start: 20101118, end: 20101221
  2. NOVOLOG [Concomitant]
     Active Substance: INSULIN ASPART
     Indication: DIABETES MELLITUS
     Dosage: 70/30
     Dates: start: 1993
  3. CLOBEX [Concomitant]
     Active Substance: CLOBETASOL PROPIONATE
     Indication: PSORIASIS
     Dosage: 1 UNIT
     Dates: start: 20120117, end: 20160820
  4. HUMIRA [Suspect]
     Active Substance: ADALIMUMAB
     Indication: PSORIASIS
     Route: 058
     Dates: start: 20090326, end: 20120612
  5. CLOBEX [Concomitant]
     Active Substance: CLOBETASOL PROPIONATE
     Indication: PSORIASIS
     Dates: start: 20120117, end: 20160820
  6. STELARA [Concomitant]
     Active Substance: USTEKINUMAB
     Dates: start: 20110419

REACTIONS (1)
  - Pulseless electrical activity [Fatal]

NARRATIVE: CASE EVENT DATE: 20160820
